FAERS Safety Report 20980096 (Version 2)
Quarter: 2022Q3

REPORT INFORMATION
  Report Type: Spontaneous
  Country: US (occurrence: US)
  Receive Date: 20220620
  Receipt Date: 20220702
  Transmission Date: 20221027
  Serious: Yes (Other)
  Sender: FDA-Public Use
  Company Number: US-AUROBINDO-AUR-APL-2022-022218

PATIENT
  Age: 61 Year
  Sex: Male

DRUGS (3)
  1. FLUCONAZOLE [Suspect]
     Active Substance: FLUCONAZOLE
     Indication: Antifungal prophylaxis
     Dosage: 400 MILLIGRAM, ONCE A DAY
     Route: 048
  2. VORICONAZOLE [Suspect]
     Active Substance: VORICONAZOLE
     Indication: Antifungal treatment
     Dosage: 200 MILLIGRAM, TWO TIMES A DAY
     Route: 048
  3. POSACONAZOLE [Suspect]
     Active Substance: POSACONAZOLE
     Indication: Antifungal treatment
     Dosage: 300 MILLIGRAM, ONCE A DAY
     Route: 048

REACTIONS (1)
  - Primary adrenal insufficiency [Recovering/Resolving]
